FAERS Safety Report 8177013-X (Version None)
Quarter: 2012Q1

REPORT INFORMATION
  Report Type: 
  Country: None (occurrence: None)
  Receive Date: 20120124
  Receipt Date: 20111111
  Transmission Date: 20120608
  Serious: No
  Sender: FDA-Public Use
  Company Number: US-006826

PATIENT
  Age: 28 Year
  Sex: Female
  Weight: 108.8633 kg

DRUGS (1)
  1. DEGARELIX [Suspect]

REACTIONS (1)
  - ACCIDENTAL EXPOSURE [None]
